FAERS Safety Report 19330105 (Version 1)
Quarter: 2021Q2

REPORT INFORMATION
  Report Type: Spontaneous
  Country: CN (occurrence: CN)
  Receive Date: 20210528
  Receipt Date: 20210528
  Transmission Date: 20210717
  Serious: Yes (Life-Threatening, Other)
  Sender: FDA-Public Use
  Company Number: CN-PFIZER INC-2021550122

PATIENT
  Age: 89 Year
  Sex: Female
  Weight: 45 kg

DRUGS (3)
  1. LINEZOLID. [Suspect]
     Active Substance: LINEZOLID
     Indication: SEPSIS
     Dosage: 0.6 G, 2X/DAY
     Route: 048
     Dates: start: 20210306, end: 20210308
  2. LINEZOLID. [Suspect]
     Active Substance: LINEZOLID
     Dosage: 0.6 G, 2X/DAY
     Route: 041
     Dates: start: 20210309, end: 20210312
  3. LINEZOLID. [Suspect]
     Active Substance: LINEZOLID
     Indication: SEPSIS
     Dosage: 0.6 G, 2X/DAY
     Route: 041
     Dates: start: 20210301, end: 20210305

REACTIONS (6)
  - Cerebral infarction [Not Recovered/Not Resolved]
  - Nausea [Not Recovered/Not Resolved]
  - Lactic acidosis [Recovering/Resolving]
  - Blood lactic acid increased [Recovering/Resolving]
  - Depressed level of consciousness [Not Recovered/Not Resolved]
  - Condition aggravated [Not Recovered/Not Resolved]

NARRATIVE: CASE EVENT DATE: 20210312
